FAERS Safety Report 24352969 (Version 1)
Quarter: 2024Q3

REPORT INFORMATION
  Report Type: Spontaneous
  Country: CN (occurrence: CN)
  Receive Date: 20240923
  Receipt Date: 20240923
  Transmission Date: 20241017
  Serious: No
  Sender: ROCHE
  Company Number: CN-ROCHE-3468824

PATIENT
  Age: 44 Year
  Sex: Female
  Weight: 72.0 kg

DRUGS (6)
  1. HERCEPTIN [Suspect]
     Active Substance: TRASTUZUMAB
     Indication: Invasive ductal breast carcinoma
     Route: 041
     Dates: start: 20231018, end: 20231025
  2. PERJETA [Suspect]
     Active Substance: PERTUZUMAB
     Indication: Invasive ductal breast carcinoma
     Route: 042
     Dates: start: 20231018, end: 20231025
  3. DOCETAXEL [Suspect]
     Active Substance: DOCETAXEL\DOCETAXEL ANHYDROUS
     Indication: Invasive ductal breast carcinoma
     Route: 041
     Dates: start: 20231018, end: 20231025
  4. SODIUM CHLORIDE [Concomitant]
     Active Substance: SODIUM CHLORIDE
  5. DEXTROSE [Concomitant]
     Active Substance: DEXTROSE\DEXTROSE MONOHYDRATE
  6. CARBOPLATIN [Concomitant]
     Active Substance: CARBOPLATIN

REACTIONS (2)
  - Transaminases increased [Recovering/Resolving]
  - Bile acids increased [Recovering/Resolving]

NARRATIVE: CASE EVENT DATE: 20231025
